FAERS Safety Report 18948277 (Version 2)
Quarter: 2021Q2

REPORT INFORMATION
  Report Type: Report from Study
  Country: US (occurrence: US)
  Receive Date: 20210227
  Receipt Date: 20210419
  Transmission Date: 20210717
  Serious: Yes (Hospitalization, Other)
  Sender: FDA-Public Use
  Company Number: US-TAKEDA-2021TUS011480

PATIENT
  Age: 3 Year
  Sex: Female

DRUGS (4)
  1. TEDUGLUTIDE [Suspect]
     Active Substance: TEDUGLUTIDE
     Indication: SHORT-BOWEL SYNDROME
     Dosage: 0.56 MILLIGRAM, QD
     Route: 058
     Dates: start: 20201216, end: 20210326
  2. TEDUGLUTIDE [Suspect]
     Active Substance: TEDUGLUTIDE
     Indication: SHORT-BOWEL SYNDROME
     Dosage: 0.56 MILLIGRAM, QD
     Route: 058
     Dates: start: 20201216, end: 20210326
  3. TEDUGLUTIDE [Suspect]
     Active Substance: TEDUGLUTIDE
     Indication: SHORT-BOWEL SYNDROME
     Dosage: 0.56 MILLIGRAM, QD
     Route: 058
     Dates: start: 20201216, end: 20210326
  4. TEDUGLUTIDE [Suspect]
     Active Substance: TEDUGLUTIDE
     Indication: SHORT-BOWEL SYNDROME
     Dosage: 0.56 MILLIGRAM, QD
     Route: 058
     Dates: start: 20201216, end: 20210326

REACTIONS (5)
  - Allergic transfusion reaction [Unknown]
  - Initial insomnia [Unknown]
  - Gastrointestinal haemorrhage [Unknown]
  - Irritability [Unknown]
  - Lethargy [Unknown]

NARRATIVE: CASE EVENT DATE: 20210203
